FAERS Safety Report 7353460-0 (Version None)
Quarter: 2011Q1

REPORT INFORMATION
  Report Type: 
  Country: None (occurrence: None)
  Receive Date: 20110315
  Receipt Date: 20110307
  Transmission Date: 20110831
  Serious: No
  Sender: FDA-Public Use
  Company Number: FR-ELI_LILLY_AND_COMPANY-FR201012005872

PATIENT
  Age: 11 Year
  Sex: Male
  Weight: 26.5 kg

DRUGS (1)
  1. STRATTERA [Suspect]
     Indication: ATTENTION DEFICIT/HYPERACTIVITY DISORDER
     Route: 048
     Dates: start: 20091130, end: 20101228

REACTIONS (3)
  - CHEST PAIN [None]
  - FATIGUE [None]
  - PALLOR [None]
